FAERS Safety Report 23088473 (Version 2)
Quarter: 2023Q4

REPORT INFORMATION
  Report Type: Report from Study
  Country: FR (occurrence: None)
  Receive Date: 20231020
  Receipt Date: 20231024
  Transmission Date: 20240110
  Serious: Yes (Hospitalization)
  Sender: FDA-Public Use
  Company Number: 2023A078641

PATIENT
  Age: 64 Year
  Sex: Female
  Weight: 66 kg

DRUGS (6)
  1. DURVALUMAB [Suspect]
     Active Substance: DURVALUMAB
     Indication: Hormone receptor positive breast cancer
     Route: 042
     Dates: start: 20221123
  2. OLECLUMAB [Suspect]
     Active Substance: OLECLUMAB
     Indication: Hormone receptor positive breast cancer
     Dosage: Q4W, 3000 MG (AT LAST ADMINISTRATION).
     Route: 042
     Dates: start: 20221123, end: 20230324
  3. PACLITAXEL [Suspect]
     Active Substance: PACLITAXEL
     Indication: Hormone receptor positive breast cancer
     Dates: start: 20221123
  4. DOXORUBICIN [Suspect]
     Active Substance: DOXORUBICIN
     Indication: Hormone receptor positive breast cancer
     Dates: start: 20230215
  5. CYCLOPHOSPHAMIDE [Suspect]
     Active Substance: CYCLOPHOSPHAMIDE
     Indication: Hormone receptor positive breast cancer
     Dates: start: 20230215
  6. KCL [Concomitant]
     Active Substance: POTASSIUM CHLORIDE
     Indication: Hypokalaemia
     Dosage: 40.0MG ONCE/SINGLE ADMINISTRATION
     Route: 042
     Dates: start: 20230325, end: 20230325

REACTIONS (1)
  - Confusional state [Recovered/Resolved]

NARRATIVE: CASE EVENT DATE: 20230326
